FAERS Safety Report 19918934 (Version 2)
Quarter: 2021Q4

REPORT INFORMATION
  Report Type: Report from Study
  Country: US (occurrence: US)
  Receive Date: 20211004
  Receipt Date: 20211116
  Transmission Date: 20220303
  Serious: No
  Sender: FDA-Public Use
  Company Number: US-BIONICAL EMAS-2021ETO000144

PATIENT

DRUGS (3)
  1. ALKINDI SPRINKLE [Suspect]
     Active Substance: HYDROCORTISONE
     Indication: Congenital anomaly of adrenal gland
     Dosage: 2 MG, AS DIRECTED
     Route: 048
     Dates: start: 20210729, end: 20211029
  2. ALKINDI SPRINKLE [Suspect]
     Active Substance: HYDROCORTISONE
     Dosage: 1 MG, AS DIRECTED
     Route: 048
     Dates: start: 20210729, end: 20211029
  3. ALKINDI SPRINKLE [Suspect]
     Active Substance: HYDROCORTISONE
     Dosage: 0.5 MG, AS DIRECTED
     Route: 048
     Dates: start: 20210729, end: 20211029

REACTIONS (5)
  - Incorrect dose administered [Unknown]
  - Somnolence [Unknown]
  - Irritability [Unknown]
  - Laziness [Unknown]
  - Cortisol increased [Unknown]

NARRATIVE: CASE EVENT DATE: 20210101
